FAERS Safety Report 8897902 (Version 3)
Quarter: 2013Q4

REPORT INFORMATION
  Report Type: Report from Study
  Country: DE (occurrence: DE)
  Receive Date: 20121109
  Receipt Date: 20131010
  Transmission Date: 20140711
  Serious: Yes (Hospitalization)
  Sender: FDA-Public Use
  Company Number: DE-ELI_LILLY_AND_COMPANY-DE201210009614

PATIENT
  Age: 62 Year
  Sex: Female
  Weight: 46 kg

DRUGS (9)
  1. PEMETREXED [Suspect]
     Indication: LUNG NEOPLASM MALIGNANT
     Dosage: 500 MG/M2, UNK
     Route: 042
     Dates: start: 20121022
  2. CISPLATIN [Suspect]
     Indication: LUNG NEOPLASM MALIGNANT
     Dosage: 75 MG/M2, UNK
     Route: 042
     Dates: start: 20121022
  3. MORPHINE [Concomitant]
  4. VITAMIN B12 [Concomitant]
  5. NEUPOGEN [Concomitant]
  6. MCP [Concomitant]
  7. PANTOZOL [Concomitant]
     Dosage: 40 MG, UNK
  8. SEVREDOL [Concomitant]
  9. DALSAN [Concomitant]

REACTIONS (1)
  - Neutropenia [Recovered/Resolved]
